FAERS Safety Report 9164615 (Version 2)
Quarter: 2013Q2

REPORT INFORMATION
  Report Type: Spontaneous
  Country: US (occurrence: US)
  Receive Date: 20130315
  Receipt Date: 20130429
  Transmission Date: 20140414
  Serious: Yes (Hospitalization)
  Sender: FDA-Public Use
  Company Number: US-JNJFOC-20130305967

PATIENT
  Age: 57 Year
  Sex: Male
  Weight: 70.31 kg

DRUGS (14)
  1. NUCYNTA IR [Suspect]
     Indication: PAIN
     Route: 048
     Dates: start: 20130227, end: 20130303
  2. NUCYNTA IR [Suspect]
     Indication: PAIN
     Route: 048
     Dates: start: 2012, end: 201302
  3. NUCYNTA IR [Suspect]
     Indication: PAIN
     Route: 048
     Dates: start: 2011, end: 2012
  4. NUCYNTA ER [Suspect]
     Indication: PAIN
     Route: 048
     Dates: start: 20130227, end: 20130303
  5. WARFARIN SODIUM [Concomitant]
     Indication: CARDIAC DISORDER
     Route: 065
     Dates: start: 2011
  6. WARFARIN SODIUM [Concomitant]
     Indication: ANTICOAGULANT THERAPY
     Route: 065
     Dates: start: 2011
  7. SIMVASTATIN [Concomitant]
     Indication: CARDIAC DISORDER
     Route: 065
     Dates: start: 2011
  8. SIMVASTATIN [Concomitant]
     Indication: BLOOD CHOLESTEROL
     Route: 065
     Dates: start: 2011
  9. LISINOPRIL [Concomitant]
     Indication: CARDIAC DISORDER
     Route: 065
  10. LISINOPRIL [Concomitant]
     Indication: BLOOD PRESSURE
     Route: 065
  11. ASPIRIN [Concomitant]
     Dosage: ONCE A DAY
     Route: 048
  12. CARVEDILOL [Concomitant]
     Indication: CARDIAC DISORDER
     Route: 065
  13. SOTALOL [Concomitant]
     Indication: CARDIAC DISORDER
     Route: 065
  14. TORSEMIDE [Concomitant]
     Indication: FLUID RETENTION
     Route: 065

REACTIONS (6)
  - Device malfunction [Recovering/Resolving]
  - Heart rate increased [Recovering/Resolving]
  - Drug resistance [Not Recovered/Not Resolved]
  - Feeling abnormal [Recovered/Resolved]
  - Palpitations [Recovered/Resolved]
  - Blood pressure increased [Recovered/Resolved]
